FAERS Safety Report 24139271 (Version 1)
Quarter: 2024Q3

REPORT INFORMATION
  Report Type: Spontaneous
  Country: US (occurrence: US)
  Receive Date: 20240726
  Receipt Date: 20240726
  Transmission Date: 20241017
  Serious: Yes (Death, Hospitalization)
  Sender: STRIDES
  Company Number: US-STRIDES ARCOLAB LIMITED-2024SP009134

PATIENT

DRUGS (11)
  1. MYCOPHENOLATE MOFETIL [Suspect]
     Active Substance: MYCOPHENOLATE MOFETIL
     Indication: Anti-melanoma differentiation-associated protein 5 antibody positive
     Dosage: UNK
     Route: 065
  2. MYCOPHENOLATE MOFETIL [Suspect]
     Active Substance: MYCOPHENOLATE MOFETIL
     Indication: Dermatomyositis
  3. TACROLIMUS [Suspect]
     Active Substance: TACROLIMUS
     Indication: Anti-melanoma differentiation-associated protein 5 antibody positive
     Dosage: UNK
     Route: 065
  4. TACROLIMUS [Suspect]
     Active Substance: TACROLIMUS
     Indication: Dermatomyositis
  5. PREDNISOLONE [Suspect]
     Active Substance: PREDNISOLONE
     Indication: Evidence based treatment
     Dosage: UNK
     Route: 065
  6. CYCLOPHOSPHAMIDE [Suspect]
     Active Substance: CYCLOPHOSPHAMIDE
     Indication: Anti-melanoma differentiation-associated protein 5 antibody positive
     Dosage: UNK
     Route: 065
  7. CYCLOPHOSPHAMIDE [Suspect]
     Active Substance: CYCLOPHOSPHAMIDE
     Indication: Dermatomyositis
  8. IMMUNE GLOBULIN NOS [Suspect]
     Active Substance: IMMUNE GLOBULIN NOS
     Indication: Anti-melanoma differentiation-associated protein 5 antibody positive
     Dosage: UNK
     Route: 042
  9. IMMUNE GLOBULIN NOS [Suspect]
     Active Substance: IMMUNE GLOBULIN NOS
     Indication: Dermatomyositis
  10. TOFACITINIB [Suspect]
     Active Substance: TOFACITINIB
     Indication: Anti-melanoma differentiation-associated protein 5 antibody positive
     Dosage: UNK
     Route: 065
  11. TOFACITINIB [Suspect]
     Active Substance: TOFACITINIB
     Indication: Dermatomyositis

REACTIONS (4)
  - Death [Fatal]
  - Drug ineffective [Unknown]
  - Disease progression [Unknown]
  - Off label use [Unknown]
